FAERS Safety Report 8392949-2 (Version None)
Quarter: 2012Q2

REPORT INFORMATION
  Report Type: 
  Country: None (occurrence: None)
  Receive Date: 20120529
  Receipt Date: 20120522
  Transmission Date: 20120825
  Serious: Yes (Hospitalization)
  Sender: FDA-Public Use
  Company Number: US-BRISTOL-MYERS SQUIBB COMPANY-16614190

PATIENT
  Age: 32 Year
  Sex: Male
  Weight: 79 kg

DRUGS (3)
  1. ABILIFY [Suspect]
     Indication: PERSONALITY DISORDER
     Dates: end: 20120517
  2. SUBOXONE [Concomitant]
  3. KLONOPIN [Concomitant]

REACTIONS (5)
  - DYSPNOEA [None]
  - PSYCHOTIC DISORDER [None]
  - PANIC ATTACK [None]
  - TREMOR [None]
  - EXPIRED DRUG ADMINISTERED [None]
